FAERS Safety Report 20226940 (Version 3)
Quarter: 2025Q1

REPORT INFORMATION
  Report Type: Report from Study
  Country: US (occurrence: US)
  Receive Date: 20211224
  Receipt Date: 20250217
  Transmission Date: 20250408
  Serious: No
  Sender: ROCHE
  Company Number: US-ROCHE-2980967

PATIENT
  Age: 62 Year
  Sex: Female

DRUGS (1)
  1. OCREVUS [Suspect]
     Active Substance: OCRELIZUMAB
     Indication: Relapsing multiple sclerosis
     Dosage: DATES OF TREATMENT: 25/OCT/2018, 07/NOV/2018, 29/JUN/2022, 30/DEC/2022.
     Route: 040

REACTIONS (2)
  - COVID-19 [Unknown]
  - Atrial fibrillation [Unknown]
